FAERS Safety Report 19908107 (Version 1)
Quarter: 2021Q4

REPORT INFORMATION
  Report Type: Report from Study
  Country: None (occurrence: CO)
  Receive Date: 20211002
  Receipt Date: 20211002
  Transmission Date: 20220303
  Serious: Yes (Disabling)
  Sender: FDA-Public Use
  Company Number: CO-ABBVIE-21K-036-3982933-00

PATIENT
  Age: 50 Year
  Sex: Female

DRUGS (4)
  1. HUMIRA [Suspect]
     Active Substance: ADALIMUMAB
     Indication: Ankylosing spondylitis
     Route: 058
     Dates: end: 20210508
  2. HUMIRA [Suspect]
     Active Substance: ADALIMUMAB
     Route: 058
     Dates: start: 2021
  3. HUMIRA [Suspect]
     Active Substance: ADALIMUMAB
     Indication: Ankylosing spondylitis
     Route: 058
     Dates: start: 20160108
  4. METHOTREXATE [Concomitant]
     Active Substance: METHOTREXATE
     Indication: Ankylosing spondylitis
     Route: 058

REACTIONS (15)
  - Gait disturbance [Recovering/Resolving]
  - Hypokinesia [Recovering/Resolving]
  - Inflammation [Recovering/Resolving]
  - Synovitis [Recovering/Resolving]
  - Bronchitis [Recovered/Resolved]
  - Ankylosing spondylitis [Recovering/Resolving]
  - Immune system disorder [Recovered/Resolved]
  - Joint swelling [Unknown]
  - Cough [Unknown]
  - Influenza [Recovered/Resolved]
  - Oral herpes [Recovered/Resolved]
  - Abscess limb [Recovered/Resolved]
  - Peripheral swelling [Unknown]
  - Pain in extremity [Recovering/Resolving]
  - Therapeutic product effect decreased [Recovering/Resolving]

NARRATIVE: CASE EVENT DATE: 20200101
